FAERS Safety Report 13917967 (Version 2)
Quarter: 2020Q4

REPORT INFORMATION
  Report Type: Spontaneous
  Country: US (occurrence: US)
  Receive Date: 20170829
  Receipt Date: 20201026
  Transmission Date: 20210113
  Serious: No
  Sender: FDA-Public Use
  Company Number: US-SA-2016SA176424

PATIENT

DRUGS (24)
  1. DIPHENHYDRAMINE. [Concomitant]
     Active Substance: DIPHENHYDRAMINE
  2. HEPARIN [Concomitant]
     Active Substance: HEPARIN SODIUM
  3. LEVOTHYROXINE. [Concomitant]
     Active Substance: LEVOTHYROXINE
  4. FABRAZYME [Suspect]
     Active Substance: AGALSIDASE BETA
     Indication: FABRY^S DISEASE
     Dosage: 80 MG,QOW
     Route: 041
     Dates: start: 20160902
  5. BACTRIM [Concomitant]
     Active Substance: SULFAMETHOXAZOLE\TRIMETHOPRIM
  6. PANTOPRAZOLE [Concomitant]
     Active Substance: PANTOPRAZOLE
  7. DOCUSATE [Concomitant]
     Active Substance: DOCUSATE
  8. CYCLOBENZAPRINE. [Concomitant]
     Active Substance: CYCLOBENZAPRINE
  9. NITROSTAT [Concomitant]
     Active Substance: NITROGLYCERIN
  10. AMITRIPTYLINE [Concomitant]
     Active Substance: AMITRIPTYLINE
  11. LORAZEPAM. [Concomitant]
     Active Substance: LORAZEPAM
  12. FABRAZYME [Suspect]
     Active Substance: AGALSIDASE BETA
     Dosage: 92 MG, QOW
     Route: 041
     Dates: start: 20180115
  13. DICLOFENAC [Concomitant]
     Active Substance: DICLOFENAC
  14. LOSARTAN. [Concomitant]
     Active Substance: LOSARTAN
  15. METOPROLOL/HCTZ [Concomitant]
     Active Substance: HYDROCHLOROTHIAZIDE\METOPROLOL
  16. EPINEPHRINE. [Concomitant]
     Active Substance: EPINEPHRINE
  17. IBUPROFEN. [Concomitant]
     Active Substance: IBUPROFEN
  18. SERTRALINE [Concomitant]
     Active Substance: SERTRALINE HYDROCHLORIDE
  19. OMEGA 3 [FISH OIL;VITAMIN E NOS] [Concomitant]
  20. LIPITOR [Concomitant]
     Active Substance: ATORVASTATIN CALCIUM
  21. COENZYME Q10 [Concomitant]
     Active Substance: DIETARY SUPPLEMENT\UBIDECARENONE
  22. STERILE WATER [Concomitant]
     Active Substance: WATER
  23. LIDOCAINE/PRILOCAINE [Concomitant]
     Active Substance: LIDOCAINE\PRILOCAINE
  24. NORMAL SALINE [Concomitant]
     Active Substance: SODIUM CHLORIDE

REACTIONS (3)
  - Fatigue [Not Recovered/Not Resolved]
  - Hypertension [Recovered/Resolved]
  - Malaise [Not Recovered/Not Resolved]

NARRATIVE: CASE EVENT DATE: 201609
